FAERS Safety Report 4636581-2 (Version None)
Quarter: 2005Q2

REPORT INFORMATION
  Report Type: 
  Country: None (occurrence: None)
  Receive Date: 20050414
  Receipt Date: 20050405
  Transmission Date: 20051028
  Serious: Yes (Death, Hospitalization)
  Sender: FDA-Public Use
  Company Number: 05P-163-0296308-00

PATIENT
  Sex: Male

DRUGS (1)
  1. TRICOR [Suspect]

REACTIONS (1)
  - ABSCESS [None]
